FAERS Safety Report 4632052-8 (Version None)
Quarter: 2005Q2

REPORT INFORMATION
  Report Type: 
  Country: None (occurrence: None)
  Receive Date: 20050411
  Receipt Date: 20050330
  Transmission Date: 20051028
  Serious: Yes (Hospitalization)
  Sender: FDA-Public Use
  Company Number: US-BRISTOL-MYERS SQUIBB COMPANY-12915138

PATIENT
  Age: 44 Year
  Sex: Female
  Weight: 80 kg

DRUGS (4)
  1. ABILIFY [Suspect]
     Indication: SCHIZOPHRENIA
  2. CLOZAPINE [Suspect]
     Indication: SCHIZOPHRENIA
     Route: 048
     Dates: start: 20021001
  3. LAMICTAL [Concomitant]
     Indication: SCHIZOPHRENIA
     Route: 048
  4. COLACE [Concomitant]
     Indication: CONSTIPATION
     Route: 048

REACTIONS (5)
  - DIZZINESS [None]
  - FALL [None]
  - HYPERCALCAEMIA [None]
  - PSYCHIATRIC SYMPTOM [None]
  - RENAL FAILURE [None]
